FAERS Safety Report 5065848-1 (Version None)
Quarter: 2006Q3

REPORT INFORMATION
  Report Type: 
  Country: None (occurrence: None)
  Receive Date: 20060728
  Receipt Date: 20060728
  Transmission Date: 20061208
  Serious: Yes (Hospitalization)
  Sender: FDA-Public Use
  Company Number: None

PATIENT
  Age: 51 Year
  Sex: Male
  Weight: 116 kg

DRUGS (2)
  1. ALLOPURINOL [Suspect]
     Indication: BACTERAEMIA
     Dosage: 300 MG   DAILY   PO
     Route: 048
     Dates: start: 20060716, end: 20060721
  2. CEFTRIAXONE [Suspect]
     Indication: BACTERAEMIA
     Dosage: 2 GRAMS   DAILY   IV
     Route: 042
     Dates: start: 20060708, end: 20060715

REACTIONS (7)
  - BACTERAEMIA [None]
  - CARDIOMYOPATHY [None]
  - CELLULITIS [None]
  - GLOMERULONEPHRITIS [None]
  - HYPOTENSION [None]
  - RENAL FAILURE ACUTE [None]
  - SEPSIS [None]
